FAERS Safety Report 24669367 (Version 1)
Quarter: 2024Q4

REPORT INFORMATION
  Report Type: Spontaneous
  Country: US (occurrence: US)
  Receive Date: 20241127
  Receipt Date: 20241127
  Transmission Date: 20250114
  Serious: Yes (Other)
  Sender: CALLIDITAS THERAPEUTICS AB
  Company Number: US-Calliditas-2024CAL02704

PATIENT

DRUGS (1)
  1. TARPEYO [Suspect]
     Active Substance: BUDESONIDE
     Indication: Product used for unknown indication
     Route: 048

REACTIONS (1)
  - Pseudo Cushing^s syndrome [Unknown]
